FAERS Safety Report 10146955 (Version 5)
Quarter: 2015Q2

REPORT INFORMATION
  Report Type: Spontaneous
  Country: US (occurrence: US)
  Receive Date: 20140501
  Receipt Date: 20150609
  Transmission Date: 20150821
  Serious: Yes (Hospitalization, Other)
  Sender: FDA-Public Use
  Company Number: US-GLAXOSMITHKLINE-A1070813A

PATIENT
  Age: 71 Year
  Sex: Female

DRUGS (7)
  1. CIPRO [Concomitant]
     Active Substance: CIPROFLOXACIN HYDROCHLORIDE
  2. COREG [Suspect]
     Active Substance: CARVEDILOL
     Indication: CARDIAC FAILURE CONGESTIVE
     Dosage: 25 MG, BID
     Route: 048
     Dates: start: 2005
  3. WARFARIN [Concomitant]
     Active Substance: WARFARIN
  4. ESTRADIOL. [Concomitant]
     Active Substance: ESTRADIOL
  5. DIGOXIN. [Concomitant]
     Active Substance: DIGOXIN
  6. FUROSEMIDE. [Concomitant]
     Active Substance: FUROSEMIDE
  7. SYNTHROID [Concomitant]
     Active Substance: LEVOTHYROXINE SODIUM

REACTIONS (4)
  - Sinusitis [Unknown]
  - Cardiac operation [Recovered/Resolved]
  - Nasal operation [Unknown]
  - Sinus disorder [Unknown]

NARRATIVE: CASE EVENT DATE: 20140212
